FAERS Safety Report 8796433 (Version 1)
Quarter: 2012Q4

REPORT INFORMATION
  Report Type: Report from Study
  Country: US (occurrence: US)
  Receive Date: 20120919
  Receipt Date: 20120919
  Transmission Date: 20130627
  Serious: Yes (Other)
  Sender: FDA-Public Use
  Company Number: US-ABBOTT-12P-163-0979439-00

PATIENT
  Age: 49 Year
  Sex: Male

DRUGS (2)
  1. HUMIRA [Suspect]
     Indication: CROHN^S DISEASE
     Dates: start: 20120821
  2. HUMIRA [Suspect]
     Dosage: Last dose
     Dates: start: 20120828

REACTIONS (2)
  - Malabsorption [Not Recovered/Not Resolved]
  - Inappropriate schedule of drug administration [Unknown]
